FAERS Safety Report 14578624 (Version 1)
Quarter: 2018Q1

REPORT INFORMATION
  Report Type: Spontaneous
  Country: US (occurrence: US)
  Receive Date: 20180227
  Receipt Date: 20180227
  Transmission Date: 20180509
  Serious: No
  Sender: FDA-Public Use
  Company Number: None

PATIENT
  Age: 43 Year
  Sex: Male

DRUGS (1)
  1. LISINOPRIL. [Suspect]
     Active Substance: LISINOPRIL
     Indication: HYPERTENSION
     Route: 048
     Dates: start: 20180221, end: 20180225

REACTIONS (5)
  - Nausea [None]
  - Hypersomnia [None]
  - Vomiting [None]
  - Product substitution issue [None]
  - Cold sweat [None]

NARRATIVE: CASE EVENT DATE: 20180202
